FAERS Safety Report 20481298 (Version 1)
Quarter: 2022Q1

REPORT INFORMATION
  Report Type: Spontaneous
  Country: DE (occurrence: DE)
  Receive Date: 20220216
  Receipt Date: 20220216
  Transmission Date: 20220423
  Serious: Yes (Other)
  Sender: FDA-Public Use
  Company Number: DE-NOVARTISPH-NVSC2022DE033838

PATIENT
  Age: 59 Year
  Sex: Male

DRUGS (8)
  1. RITUXIMAB [Suspect]
     Active Substance: RITUXIMAB
     Indication: Encephalitis autoimmune
     Dosage: UNK
     Route: 065
  2. RITUXIMAB [Suspect]
     Active Substance: RITUXIMAB
     Indication: Paraneoplastic syndrome
  3. METHYLPREDNISOLONE [Suspect]
     Active Substance: METHYLPREDNISOLONE
     Indication: Encephalitis autoimmune
     Dosage: 20 MG (DAYS 1 AND 2)
     Route: 048
  4. METHYLPREDNISOLONE [Suspect]
     Active Substance: METHYLPREDNISOLONE
     Indication: Paraneoplastic syndrome
  5. DARATUMUMAB [Suspect]
     Active Substance: DARATUMUMAB
     Indication: Encephalitis autoimmune
     Dosage: 16 MG/KG, CYCLIC (1 CYCLE)
     Route: 041
  6. DARATUMUMAB [Suspect]
     Active Substance: DARATUMUMAB
     Indication: Paraneoplastic syndrome
  7. ACYCLOVIR [Concomitant]
     Active Substance: ACYCLOVIR
     Indication: Infection prophylaxis
     Dosage: 200 MG, QD
     Route: 065
  8. SULFAMETHOXAZOLE\TRIMETHOPRIM [Concomitant]
     Active Substance: SULFAMETHOXAZOLE\TRIMETHOPRIM
     Indication: Infection prophylaxis
     Dosage: 960 MG, QW3
     Route: 065

REACTIONS (4)
  - Fungal endocarditis [Unknown]
  - Systemic candida [Unknown]
  - Tracheobronchitis [Unknown]
  - Product use in unapproved indication [Unknown]
